FAERS Safety Report 23765254 (Version 1)
Quarter: 2024Q2

REPORT INFORMATION
  Report Type: Spontaneous
  Country: RU (occurrence: RU)
  Receive Date: 20240420
  Receipt Date: 20240420
  Transmission Date: 20240715
  Serious: Yes (Other)
  Sender: FDA-Public Use
  Company Number: RU-AMAROX PHARMA-HET2024RU01067

PATIENT
  Sex: Male

DRUGS (3)
  1. LAMIVUDINE [Suspect]
     Active Substance: LAMIVUDINE
     Indication: HIV infection
     Dosage: 300 MILLIGRAM, QD (2 TABLETS ONCE A DAY)
     Route: 048
     Dates: start: 20240227, end: 20240408
  2. ABACAVIR SULFATE [Suspect]
     Active Substance: ABACAVIR SULFATE
     Indication: HIV infection
     Dosage: 600 MILLIGRAM, QD (1 TABLET ONCE A DAY)
     Route: 048
     Dates: start: 20240227, end: 20240408
  3. TIVICAY [Suspect]
     Active Substance: DOLUTEGRAVIR SODIUM
     Indication: HIV infection
     Dosage: 50 MILLIGRAM, QD (1 TABLET ONCE A DAY)
     Route: 048
     Dates: start: 20240227, end: 20240408

REACTIONS (4)
  - Dizziness [Recovered/Resolved]
  - Chills [Unknown]
  - Hypoacusis [Unknown]
  - Nausea [Unknown]

NARRATIVE: CASE EVENT DATE: 20240326
